FAERS Safety Report 14663972 (Version 1)
Quarter: 2018Q1

REPORT INFORMATION
  Report Type: Spontaneous
  Country: US (occurrence: US)
  Receive Date: 20180318
  Receipt Date: 20180318
  Transmission Date: 20180509
  Serious: Yes (Other)
  Sender: FDA-Public Use
  Company Number: None

PATIENT
  Age: 65 Year
  Sex: Female
  Weight: 72.9 kg

DRUGS (3)
  1. BISOPROLOL-HTCZ 5-6.25 MG TAB [Suspect]
     Active Substance: BISOPROLOL FUMARATE\HYDROCHLOROTHIAZIDE
     Indication: HYPERTENSION
     Dosage: ?          QUANTITY:30 TABLET(S);?
     Route: 048
     Dates: start: 20180221, end: 20180315
  2. BISOPROLOL-HTCZ 5-6.25 MG TAB [Suspect]
     Active Substance: BISOPROLOL FUMARATE\HYDROCHLOROTHIAZIDE
     Indication: HEART RATE INCREASED
     Dosage: ?          QUANTITY:30 TABLET(S);?
     Route: 048
     Dates: start: 20180221, end: 20180315
  3. PEPCID [Concomitant]
     Active Substance: FAMOTIDINE

REACTIONS (3)
  - Hypoaesthesia [None]
  - Paraesthesia [None]
  - Limb discomfort [None]

NARRATIVE: CASE EVENT DATE: 20180312
